FAERS Safety Report 6072078-3 (Version None)
Quarter: 2009Q1

REPORT INFORMATION
  Report Type: 
  Country: None (occurrence: None)
  Receive Date: 20090210
  Receipt Date: 20090206
  Transmission Date: 20090719
  Serious: Yes (Life-Threatening)
  Sender: FDA-Public Use
  Company Number: FR-AVENTIS-200814309FR

PATIENT
  Age: 68 Year
  Sex: Female

DRUGS (5)
  1. LASIX [Suspect]
     Route: 048
     Dates: start: 20071208
  2. ACTIVASE [Suspect]
     Route: 042
     Dates: start: 20071216, end: 20071216
  3. EUPRESSYL                          /00631801/ [Suspect]
     Route: 042
     Dates: start: 20071216, end: 20071216
  4. CARDENSIEL [Suspect]
     Indication: DRUG USE FOR UNKNOWN INDICATION
     Route: 048
     Dates: start: 20071209
  5. CORDARONE [Concomitant]
     Indication: ARRHYTHMIA
     Dates: start: 20071201

REACTIONS (2)
  - CEREBRAL ISCHAEMIA [None]
  - HYPOTENSION [None]
